FAERS Safety Report 5622347-3 (Version None)
Quarter: 2008Q1

REPORT INFORMATION
  Report Type: 
  Country: None (occurrence: None)
  Receive Date: 20080114
  Receipt Date: 20070713
  Transmission Date: 20080703
  Serious: Yes (Other)
  Sender: FDA-Public Use
  Company Number: A03200704754

PATIENT
  Age: 64 Year
  Sex: Male
  Weight: 74.83 kg

DRUGS (8)
  1. PLAVIX [Suspect]
     Indication: RETINAL VASCULAR OCCLUSION
     Dosage: 75 MG QD - ORAL
     Route: 048
     Dates: start: 20021001
  2. ATORVASTATIN CALCIUM [Concomitant]
  3. DIAZEPAM [Concomitant]
  4. FOLIC ACID [Concomitant]
  5. LORATADINE [Concomitant]
  6. AMITRIPTYLINE HYDROCHLORIDE [Concomitant]
  7. RAMIPRIL [Concomitant]
  8. ESOMEPRAZOLE [Concomitant]

REACTIONS (21)
  - ARTHRALGIA [None]
  - ASTHENIA [None]
  - BLOOD CHOLESTEROL INCREASED [None]
  - CARDIAC STRESS TEST ABNORMAL [None]
  - CEREBRAL ISCHAEMIA [None]
  - CHEST PAIN [None]
  - ELECTROCARDIOGRAM ABNORMAL [None]
  - FEELING ABNORMAL [None]
  - GROIN PAIN [None]
  - HEADACHE [None]
  - HYPERSOMNIA [None]
  - HYPERTENSION [None]
  - INFLUENZA LIKE ILLNESS [None]
  - INSOMNIA [None]
  - MIGRAINE [None]
  - OEDEMA PERIPHERAL [None]
  - PARESIS [None]
  - PYREXIA [None]
  - RASH [None]
  - SINUSITIS [None]
  - THROMBOCYTOPENIA [None]
